FAERS Safety Report 4867309-9 (Version None)
Quarter: 2005Q4

REPORT INFORMATION
  Report Type: 
  Country: None (occurrence: None)
  Receive Date: 20051228
  Receipt Date: 19991208
  Transmission Date: 20060501
  Serious: Yes (Death, Life-Threatening, Disabling)
  Sender: FDA-Public Use
  Company Number: US-ROCHE-222329

PATIENT
  Age: 48 Year
  Sex: Male
  Weight: 106.3 kg

DRUGS (17)
  1. MYCOPHENOLATE MOFETIL [Suspect]
     Route: 048
     Dates: start: 19991202, end: 19991210
  2. DACLIZUMAB [Suspect]
     Route: 042
     Dates: start: 19991202, end: 19991209
  3. DACLIZUMAB [Suspect]
     Route: 042
     Dates: start: 19991210
  4. PROSTIN VR PEDIATRIC [Suspect]
     Indication: DRUG USE FOR UNKNOWN INDICATION
     Route: 065
     Dates: start: 19991202, end: 19991204
  5. SOLU-MEDROL [Suspect]
     Route: 065
     Dates: start: 19991202, end: 19991210
  6. NEORAL [Suspect]
     Route: 065
     Dates: start: 19991202, end: 19991209
  7. HEPARIN LOCK-FLUSH [Suspect]
     Indication: DRUG USE FOR UNKNOWN INDICATION
     Route: 065
     Dates: start: 19991202, end: 19991204
  8. PRIMACOR [Concomitant]
     Dates: start: 19991202, end: 19991205
  9. VASOPRESSIN [Concomitant]
     Dates: start: 19991202, end: 19991205
  10. LASIX [Concomitant]
     Dates: start: 19991204, end: 19991209
  11. EPINEPHRINE [Concomitant]
     Dates: start: 19991202, end: 19991204
  12. ISUPREL [Concomitant]
     Dates: start: 19991202, end: 19991205
  13. AMIODARONE [Concomitant]
     Dates: start: 19991203
  14. NITRIC OXIDE [Concomitant]
     Dates: start: 19991202, end: 19991204
  15. NYSTATIN [Concomitant]
     Dates: start: 19991202, end: 19991210
  16. CARAFATE [Concomitant]
     Dates: start: 19991202, end: 19991210
  17. VANCOMYCIN [Concomitant]
     Dates: start: 19991202, end: 19991209

REACTIONS (5)
  - COAGULOPATHY [None]
  - DISSEMINATED INTRAVASCULAR COAGULATION [None]
  - HAEMORRHAGE INTRACRANIAL [None]
  - PLATELET FUNCTION TEST ABNORMAL [None]
  - THROMBOCYTOPENIA [None]
